FAERS Safety Report 8124951-X (Version None)
Quarter: 2012Q1

REPORT INFORMATION
  Report Type: 
  Country: None (occurrence: None)
  Receive Date: 20120209
  Receipt Date: 20120206
  Transmission Date: 20120608
  Serious: Yes (Other)
  Sender: FDA-Public Use
  Company Number: DE-ROCHE-1036435

PATIENT
  Age: 85 Year
  Sex: Female

DRUGS (1)
  1. RANIBIZUMAB [Suspect]
     Indication: RETINAL HAEMORRHAGE
     Route: 050

REACTIONS (2)
  - VITREOUS HAEMORRHAGE [None]
  - RETINAL HAEMORRHAGE [None]
